FAERS Safety Report 8045649-2 (Version None)
Quarter: 2012Q1

REPORT INFORMATION
  Report Type: 
  Country: None (occurrence: None)
  Receive Date: 20120113
  Receipt Date: 20120110
  Transmission Date: 20120608
  Serious: Yes (Life-Threatening, Hospitalization)
  Sender: FDA-Public Use
  Company Number: FR-PFIZER INC-2011062384

PATIENT
  Age: 9 Year
  Sex: Female

DRUGS (3)
  1. ASPEGIC 325 [Concomitant]
     Indication: PYREXIA
     Dosage: 1 DF, SINGLE
     Route: 048
     Dates: start: 20101031, end: 20101031
  2. ACETAMINOPHEN [Concomitant]
     Indication: PYREXIA
     Dosage: 1 DF, SINGLE
     Route: 048
     Dates: start: 20101029, end: 20101029
  3. IBUPROFEN (ADVIL) [Suspect]
     Indication: PYREXIA
     Dosage: 1 DF, SINGLE
     Route: 048
     Dates: start: 20101030, end: 20101030

REACTIONS (2)
  - SKIN TEST NEGATIVE [None]
  - TOXIC EPIDERMAL NECROLYSIS [None]
